FAERS Safety Report 4431385-8 (Version None)
Quarter: 2004Q3

REPORT INFORMATION
  Report Type: 
  Country: None (occurrence: None)
  Receive Date: 20040824
  Receipt Date: 20040616
  Transmission Date: 20050211
  Serious: Yes (Other)
  Sender: FDA-Public Use
  Company Number: US-ROCHE-371492

PATIENT
  Age: 73 Year
  Sex: Female
  Weight: 49.9 kg

DRUGS (7)
  1. PEGASYS [Suspect]
     Indication: HEPATITIS C
     Dosage: STRENGTH: 180 MCG/0.5 ML.
     Route: 065
     Dates: start: 20040527
  2. COPEGUS [Suspect]
     Indication: HEPATITIS C
     Route: 065
     Dates: start: 20040527
  3. ROFERON-A [Suspect]
     Indication: HEPATITIS C
     Route: 065
     Dates: start: 19980615, end: 20000615
  4. COUMADIN [Concomitant]
     Dates: start: 19970615
  5. LANOXIN [Concomitant]
     Dates: start: 19970615
  6. BETAPACE [Concomitant]
     Dates: start: 19970615
  7. NORVASC [Concomitant]
     Dates: start: 20010615

REACTIONS (10)
  - ASCITES [None]
  - DISEASE RECURRENCE [None]
  - DRUG INEFFECTIVE [None]
  - FLUID RETENTION [None]
  - HEPATIC CIRRHOSIS [None]
  - HEPATITIS C [None]
  - MUSCLE CRAMP [None]
  - MUSCLE SPASMS [None]
  - PELVIC FRACTURE [None]
  - SPLENOMEGALY [None]
